FAERS Safety Report 9221725 (Version 1)
Quarter: 2013Q2

REPORT INFORMATION
  Report Type: Spontaneous
  Country: JP (occurrence: None)
  Receive Date: 20130408
  Receipt Date: 20130408
  Transmission Date: 20140414
  Serious: Yes (Other)
  Sender: FDA-Public Use
  Company Number: SYM-2013-02144

PATIENT
  Age: 89 Year
  Sex: Female

DRUGS (2)
  1. DILTIAZEM (DILTIAZEM) (DILTIAZEM) [Suspect]
     Indication: ATRIAL TACHYCARDIA
  2. VERAPAMIL [Suspect]
     Indication: ATRIAL TACHYCARDIA

REACTIONS (2)
  - Bradycardia [None]
  - Device pacing issue [None]
